FAERS Safety Report 8412562-8 (Version None)
Quarter: 2012Q2

REPORT INFORMATION
  Report Type: 
  Country: None (occurrence: None)
  Receive Date: 20120605
  Receipt Date: 20120521
  Transmission Date: 20120825
  Serious: No
  Sender: FDA-Public Use
  Company Number: US-AMGEN-USASP2012031741

PATIENT
  Age: 62 Year
  Sex: Female

DRUGS (1)
  1. ENBREL [Suspect]
     Indication: RHEUMATOID ARTHRITIS
     Dosage: 50 MG, Q2WK
     Dates: start: 20120513

REACTIONS (10)
  - MASS [None]
  - FEELING HOT [None]
  - PAIN IN EXTREMITY [None]
  - MALAISE [None]
  - NAUSEA [None]
  - MOBILITY DECREASED [None]
  - RHEUMATOID ARTHRITIS [None]
  - DYSPNOEA [None]
  - HEADACHE [None]
  - ORAL PAIN [None]
